FAERS Safety Report 24294276 (Version 2)
Quarter: 2025Q3

REPORT INFORMATION
  Report Type: Spontaneous
  Country: US (occurrence: US)
  Receive Date: 20240906
  Receipt Date: 20250905
  Transmission Date: 20251021
  Serious: No
  Sender: DOMPE FARMACEUTICI
  Company Number: US-FARMAPROD-202406-2223

PATIENT
  Sex: Female
  Weight: 48.08 kg

DRUGS (23)
  1. OXERVATE [Suspect]
     Active Substance: CENEGERMIN-BKBJ
     Indication: Neurotrophic keratopathy
     Route: 047
     Dates: start: 20240523, end: 20240716
  2. OXERVATE [Suspect]
     Active Substance: CENEGERMIN-BKBJ
  3. OXERVATE [Suspect]
     Active Substance: CENEGERMIN-BKBJ
  4. OXERVATE [Suspect]
     Active Substance: CENEGERMIN-BKBJ
     Dates: start: 20240719
  5. REFRESH TEARS [Concomitant]
     Active Substance: CARBOXYMETHYLCELLULOSE SODIUM
  6. VITAMINS [Concomitant]
     Active Substance: VITAMINS
  7. OS-CAL 500-VIT D3 [Concomitant]
  8. GAMUNEX-C [Concomitant]
     Active Substance: HUMAN IMMUNOGLOBULIN G
  9. SIMPONI [Concomitant]
     Active Substance: GOLIMUMAB
  10. SYNTHROID [Concomitant]
     Active Substance: LEVOTHYROXINE SODIUM
  11. SYNTHROID [Concomitant]
     Active Substance: LEVOTHYROXINE SODIUM
  12. PREDNISONE [Concomitant]
     Active Substance: PREDNISONE
  13. LEFLUNOMIDE [Concomitant]
     Active Substance: LEFLUNOMIDE
  14. PROLIA [Concomitant]
     Active Substance: DENOSUMAB
  15. VITAMIN D3 [Concomitant]
     Active Substance: CHOLECALCIFEROL
  16. ESTRADIOL [Concomitant]
     Active Substance: ESTRADIOL
  17. GABAPENTIN [Concomitant]
     Active Substance: GABAPENTIN
  18. TRAMADOL HCL [Concomitant]
     Active Substance: TRAMADOL HYDROCHLORIDE
  19. LEVOTHYROXINE SODIUM [Concomitant]
     Active Substance: LEVOTHYROXINE SODIUM
  20. ATORVASTATIN CALCIUM [Concomitant]
     Active Substance: ATORVASTATIN CALCIUM
  21. METHOTREXATE [Concomitant]
     Active Substance: METHOTREXATE
  22. INFLECTRA [Concomitant]
     Active Substance: INFLIXIMAB-DYYB
  23. FOLIC ACID [Concomitant]
     Active Substance: FOLIC ACID

REACTIONS (3)
  - Eye pain [Unknown]
  - Accidental overdose [Unknown]
  - Drug ineffective [Not Recovered/Not Resolved]
